FAERS Safety Report 4944348-0 (Version None)
Quarter: 2006Q1

REPORT INFORMATION
  Report Type: 
  Country: None (occurrence: None)
  Receive Date: 20060104
  Receipt Date: 20050922
  Transmission Date: 20060701
  Serious: Yes (Hospitalization)
  Sender: FDA-Public Use
  Company Number: SU-2005-004052

PATIENT
  Age: 58 Year
  Sex: Female
  Weight: 90.7194 kg

DRUGS (2)
  1. BENICAR HCT [Suspect]
     Dosage: 40.125 MG QD PO
     Route: 048
     Dates: start: 20041119
  2. SYNTHROID [Concomitant]

REACTIONS (2)
  - DIARRHOEA [None]
  - HYPOTENSION [None]
